FAERS Safety Report 11250599 (Version 1)
Quarter: 2015Q3

REPORT INFORMATION
  Report Type: Spontaneous
  Country: US (occurrence: US)
  Receive Date: 20150708
  Receipt Date: 20150708
  Transmission Date: 20151125
  Serious: No
  Sender: FDA-Public Use
  Company Number: US-ELI_LILLY_AND_COMPANY-US201102000081

PATIENT
  Age: 88 Year
  Sex: Female

DRUGS (4)
  1. DECADRON [Concomitant]
     Active Substance: DEXAMETHASONE
     Route: 042
  2. VITAMIN B12 AND FOLIC ACID [Concomitant]
  3. ALIMTA [Suspect]
     Active Substance: PEMETREXED DISODIUM
     Indication: OVARIAN CANCER
     Dosage: 733 MG, EVERY 3 WEEKS
  4. ALOXI [Concomitant]
     Active Substance: PALONOSETRON HYDROCHLORIDE
     Route: 042

REACTIONS (3)
  - Malaise [Unknown]
  - Fatigue [Unknown]
  - Decreased appetite [Unknown]
